FAERS Safety Report 13563150 (Version 2)
Quarter: 2017Q2

REPORT INFORMATION
  Report Type: Spontaneous
  Country: ES (occurrence: ES)
  Receive Date: 20170519
  Receipt Date: 20170522
  Transmission Date: 20170830
  Serious: Yes (Hospitalization)
  Sender: FDA-Public Use
  Company Number: ALCN2017ES003350

PATIENT
  Age: 52 Year
  Sex: Female

DRUGS (2)
  1. PROPOFOL. [Concomitant]
     Active Substance: PROPOFOL
     Indication: SEDATION
     Dosage: UNK
     Route: 065
  2. ATROPINE SULFATE. [Suspect]
     Active Substance: ATROPINE SULFATE
     Indication: PRODUCT USED FOR UNKNOWN INDICATION
     Dosage: UNK
     Route: 047

REACTIONS (6)
  - Palpitations [Recovered/Resolved]
  - Tachycardia [Recovered/Resolved]
  - Angina pectoris [Recovered/Resolved]
  - Hypertension [Recovered/Resolved]
  - General physical condition abnormal [Recovered/Resolved]
  - Chest pain [Recovered/Resolved]
